FAERS Safety Report 24224171 (Version 1)
Quarter: 2024Q3

REPORT INFORMATION
  Report Type: Spontaneous
  Country: CN (occurrence: CN)
  Receive Date: 20240819
  Receipt Date: 20240819
  Transmission Date: 20241016
  Serious: Yes (Life-Threatening)
  Sender: MERCK
  Company Number: CN-009507513-2408CHN005784

PATIENT
  Age: 74 Year
  Sex: Male
  Weight: 63 kg

DRUGS (4)
  1. JANUVIA [Suspect]
     Active Substance: SITAGLIPTIN PHOSPHATE
     Indication: Blood glucose abnormal
     Dosage: 0.1 G, QD
     Route: 048
     Dates: start: 20240802, end: 20240803
  2. GLUCOBAY [Suspect]
     Active Substance: ACARBOSE
     Indication: Blood glucose abnormal
     Dosage: 0.1 G, TID
     Route: 048
     Dates: start: 20240802, end: 20240803
  3. METFORMIN HYDROCHLORIDE [Suspect]
     Active Substance: METFORMIN HYDROCHLORIDE
     Indication: Blood glucose abnormal
     Dosage: 0.25 G, BID
     Route: 048
     Dates: start: 20240802, end: 20240803
  4. PIOGLITAZONE HYDROCHLORIDE [Suspect]
     Active Substance: PIOGLITAZONE HYDROCHLORIDE
     Indication: Blood glucose abnormal
     Dosage: 30 MG, QD
     Route: 048
     Dates: start: 20240802, end: 20240803

REACTIONS (1)
  - Hypoglycaemia [Recovering/Resolving]

NARRATIVE: CASE EVENT DATE: 20240803
